FAERS Safety Report 17495205 (Version 1)
Quarter: 2020Q1

REPORT INFORMATION
  Report Type: Spontaneous
  Country: CN (occurrence: CN)
  Receive Date: 20200304
  Receipt Date: 20200304
  Transmission Date: 20200409
  Serious: Yes (Other)
  Sender: FDA-Public Use
  Company Number: CN-PFIZER INC-2020091619

PATIENT
  Age: 30 Year
  Sex: Female
  Weight: 74 kg

DRUGS (5)
  1. OXYTOCIN. [Concomitant]
     Active Substance: OXYTOCIN
     Indication: UTERINE CONTRACTIONS DURING PREGNANCY
     Dosage: 20 UNITS
     Route: 041
     Dates: start: 20200227, end: 20200227
  2. RINGER^S SOLUTION [CALCIUM CHLORIDE;POTASSIUM CHLORIDE;SODIUM CHLORIDE [Concomitant]
     Dosage: 500 ML, UNK
     Route: 041
     Dates: start: 20200227, end: 20200227
  3. CARBOPROST TROMETAMOL [Suspect]
     Active Substance: CARBOPROST TROMETHAMINE
     Indication: UTERINE HYPOTONUS
  4. CARBOPROST TROMETAMOL [Suspect]
     Active Substance: CARBOPROST TROMETHAMINE
     Indication: DELIVERY
     Dosage: 250 UG, 1X/DAY
     Route: 015
     Dates: start: 20200227, end: 20200227
  5. CARBOPROST TROMETAMOL [Suspect]
     Active Substance: CARBOPROST TROMETHAMINE
     Indication: CAESAREAN SECTION

REACTIONS (6)
  - Respiratory rate increased [Recovered/Resolved]
  - Headache [Recovering/Resolving]
  - Product use in unapproved indication [Unknown]
  - Heart rate increased [Recovered/Resolved]
  - Off label use [Unknown]
  - Blood pressure increased [Recovered/Resolved]

NARRATIVE: CASE EVENT DATE: 20200227
